FAERS Safety Report 8401420-0 (Version None)
Quarter: 2012Q2

REPORT INFORMATION
  Report Type: 
  Country: None (occurrence: None)
  Receive Date: 20120601
  Receipt Date: 20120529
  Transmission Date: 20120825
  Serious: Yes (Hospitalization)
  Sender: FDA-Public Use
  Company Number: PHHO2010FR14882

PATIENT
  Sex: Male

DRUGS (3)
  1. NEORAL [Suspect]
     Indication: RENAL TRANSPLANT
     Dosage: 425 MG, / DAY (200 +225)
     Route: 048
     Dates: start: 20100701, end: 20100725
  2. CEPHALOSPORINES [Suspect]
  3. MYCOPHENOLIC ACID [Suspect]
     Indication: RENAL TRANSPLANT
     Dosage: 720 MG, BID
     Route: 048
     Dates: start: 20100701, end: 20100725

REACTIONS (8)
  - PROTEUS TEST POSITIVE [None]
  - INTRA-ABDOMINAL HAEMATOMA [None]
  - TOXIC SKIN ERUPTION [None]
  - ENTEROCOCCAL INFECTION [None]
  - SUTURE RUPTURE [None]
  - PYREXIA [None]
  - RENAL NECROSIS [None]
  - PROTEUS INFECTION [None]
